FAERS Safety Report 11860234 (Version 1)
Quarter: 2015Q4

REPORT INFORMATION
  Report Type: Spontaneous
  Country: FR (occurrence: FR)
  Receive Date: 20151222
  Receipt Date: 20151222
  Transmission Date: 20160305
  Serious: Yes (Hospitalization)
  Sender: FDA-Public Use
  Company Number: FR-PFIZER INC-2015451543

PATIENT
  Age: 29 Year
  Sex: Female

DRUGS (8)
  1. DOLIPRANE [Concomitant]
     Active Substance: ACETAMINOPHEN
     Dosage: UNK
     Dates: start: 20151121, end: 20151121
  2. TRIFLUCAN [Suspect]
     Active Substance: FLUCONAZOLE
     Indication: FUNGAL INFECTION
     Dosage: 100 MG, DAILY
     Route: 048
     Dates: start: 20151119, end: 20151120
  3. DOLIPRANE [Concomitant]
     Active Substance: ACETAMINOPHEN
     Dosage: UNK
     Dates: start: 20151123, end: 20151123
  4. GAVISCON /00237601/ [Concomitant]
     Active Substance: ALUMINUM HYDROXIDE\MAGNESIUM CARBONATE
     Dosage: UNK
     Dates: start: 20051122, end: 20151124
  5. FUNGIZONE [Concomitant]
     Active Substance: AMPHOTERICIN B
     Indication: FUNGAL INFECTION
     Dosage: UNK
     Dates: start: 201510, end: 20151118
  6. INEXIUM /01479302/ [Concomitant]
     Active Substance: ESOMEPRAZOLE MAGNESIUM
     Dosage: UNK
     Dates: start: 20151121, end: 20151123
  7. DIFFU-K [Concomitant]
     Active Substance: POTASSIUM CHLORIDE
     Dosage: UNK
     Dates: start: 20151120, end: 20151122
  8. OROZAMUDOL [Concomitant]
     Active Substance: TRAMADOL
     Dosage: UNK
     Dates: start: 20151123, end: 20151123

REACTIONS (1)
  - Hepatocellular injury [Not Recovered/Not Resolved]

NARRATIVE: CASE EVENT DATE: 20151129
